FAERS Safety Report 10368256 (Version 2)
Quarter: 2019Q4

REPORT INFORMATION
  Report Type: Report from Study
  Country: US (occurrence: US)
  Receive Date: 20140807
  Receipt Date: 20191218
  Transmission Date: 20200122
  Serious: Yes (Hospitalization)
  Sender: FDA-Public Use
  Company Number: US-SA-2014SA104945

PATIENT
  Age: 33 Year
  Sex: Male

DRUGS (2)
  1. BENADRYL [Concomitant]
     Active Substance: DIPHENHYDRAMINE HYDROCHLORIDE
     Indication: PREMEDICATION
     Dosage: UNK UNK, UNK
     Route: 065
  2. AGALSIDASE BETA [Suspect]
     Active Substance: AGALSIDASE BETA
     Indication: FABRY^S DISEASE
     Dosage: 65 UNK; Q2
     Route: 041
     Dates: start: 20060612

REACTIONS (3)
  - Fluid retention [Recovering/Resolving]
  - Malaise [Recovering/Resolving]
  - Limb operation [Recovering/Resolving]

NARRATIVE: CASE EVENT DATE: 20191114
